FAERS Safety Report 5764896-3 (Version None)
Quarter: 2008Q2

REPORT INFORMATION
  Report Type: 
  Country: None (occurrence: None)
  Receive Date: 20080611
  Receipt Date: 20080602
  Transmission Date: 20081010
  Serious: Yes (Hospitalization)
  Sender: FDA-Public Use
  Company Number: DE-AVENTIS-200811342DE

PATIENT
  Age: 44 Year
  Sex: Female

DRUGS (2)
  1. ARAVA [Suspect]
     Route: 048
     Dates: start: 20070101, end: 20080213
  2. MTX                                /00113801/ [Concomitant]
     Dosage: DOSE: 20 MG/WEEK
     Route: 048
     Dates: start: 20061201

REACTIONS (1)
  - EOSINOPHILIC PNEUMONIA [None]
